FAERS Safety Report 6115898-9 (Version None)
Quarter: 2009Q1

REPORT INFORMATION
  Report Type: 
  Country: None (occurrence: None)
  Receive Date: 20090311
  Receipt Date: 20090224
  Transmission Date: 20090719
  Serious: Yes (Hospitalization, Other)
  Sender: FDA-Public Use
  Company Number: MSTR-NO-0903S-0055

PATIENT
  Age: 67 Year
  Sex: Male
  Weight: 59 kg

DRUGS (1)
  1. METASTRON [Suspect]
     Indication: METASTATIC PAIN
     Dosage: 3.1 ML, SINGLE DOSE, I.V.
     Route: 042
     Dates: start: 20090113, end: 20090113

REACTIONS (4)
  - ALTERED STATE OF CONSCIOUSNESS [None]
  - DELIRIUM [None]
  - HYPERCALCAEMIA [None]
  - PAIN [None]
